FAERS Safety Report 6662356-9 (Version None)
Quarter: 2010Q1

REPORT INFORMATION
  Report Type: 
  Country: None (occurrence: None)
  Receive Date: 20100331
  Receipt Date: 20100121
  Transmission Date: 20100710
  Serious: No
  Sender: FDA-Public Use
  Company Number: US-ABBOTT-10P-163-0622197-00

PATIENT
  Sex: Female
  Weight: 49.94 kg

DRUGS (1)
  1. LUPRON DEPOT [Suspect]
     Indication: UTERINE LEIOMYOMA
     Route: 030

REACTIONS (6)
  - HOT FLUSH [None]
  - NASAL CONGESTION [None]
  - NASOPHARYNGITIS [None]
  - NIGHT SWEATS [None]
  - OROPHARYNGEAL PAIN [None]
  - URTICARIA [None]
